FAERS Safety Report 7676943-2 (Version None)
Quarter: 2011Q3

REPORT INFORMATION
  Report Type: 
  Country: None (occurrence: None)
  Receive Date: 20110805
  Receipt Date: 20110722
  Transmission Date: 20111222
  Serious: Yes (Hospitalization, Other)
  Sender: FDA-Public Use
  Company Number: 2011MA005806

PATIENT
  Age: 75 Year
  Sex: Male

DRUGS (7)
  1. AZD5363 (NO PREF. NAME) [Suspect]
     Indication: NEOPLASM MALIGNANT
     Dosage: 160MG BID PO
     Route: 048
     Dates: start: 20110301, end: 20110323
  2. SIMAVASTATIN [Concomitant]
  3. SPIRONOLACTONE [Suspect]
     Indication: HYPERTENSION
     Dosage: 100MG; QD; PO
     Route: 048
     Dates: start: 20110222
  4. ROSUVASTATIN [Concomitant]
  5. ATENOLOL [Suspect]
     Indication: HYPERTENSION
     Dosage: 50MG QD PO
     Route: 048
     Dates: start: 20110401
  6. AZD5363 (NO PREF. NAME) [Suspect]
     Indication: NEOPLASM MALIGNANT
     Dosage: 160MG QD PO
     Route: 048
     Dates: start: 20110222
  7. BENDROFLUMETHIAZIDE [Concomitant]

REACTIONS (3)
  - SINUS BRADYCARDIA [None]
  - SINUS ARRHYTHMIA [None]
  - HYPOKALAEMIA [None]
